FAERS Safety Report 8865267 (Version 1)
Quarter: 2012Q4

REPORT INFORMATION
  Report Type: 
  Country: US (occurrence: US)
  Receive Date: 20121024
  Receipt Date: 20121024
  Transmission Date: 20130627
  Serious: No
  Sender: FDA-Public Use
  Company Number: US-AMGEN-USASP2012002009

PATIENT
  Age: 67 Year
  Sex: Female

DRUGS (1)
  1. ENBREL [Suspect]
     Indication: PSORIASIS
     Dosage: 50 mg, qwk
     Dates: start: 20110930

REACTIONS (5)
  - Epistaxis [Recovered/Resolved]
  - Oropharyngeal pain [Recovered/Resolved]
  - Ear pain [Recovered/Resolved]
  - Rhinorrhoea [Recovered/Resolved]
  - Headache [Recovered/Resolved]
